FAERS Safety Report 4949751-0 (Version None)
Quarter: 2006Q1

REPORT INFORMATION
  Report Type: 
  Country: None (occurrence: None)
  Receive Date: 20060321
  Receipt Date: 20060209
  Transmission Date: 20060701
  Serious: Yes (Death, Hospitalization, Other)
  Sender: FDA-Public Use
  Company Number: US-MERCK-0602USA02502

PATIENT
  Age: 69 Year
  Sex: Male
  Weight: 91 kg

DRUGS (15)
  1. VIOXX [Suspect]
     Indication: PAIN
     Route: 048
     Dates: start: 20010101, end: 20040101
  2. PLAVIX [Concomitant]
     Route: 065
  3. EFFEXOR [Concomitant]
     Route: 065
  4. DILANTIN [Concomitant]
     Route: 065
  5. LISINOPRIL [Concomitant]
     Route: 065
  6. COLACE [Concomitant]
     Route: 065
  7. LEVOTHROID [Concomitant]
     Route: 065
  8. ATENOLOL [Concomitant]
     Route: 065
  9. HYDROCHLOROTHIAZIDE [Concomitant]
     Route: 065
  10. POTASSIUM CHLORIDE [Concomitant]
     Route: 065
  11. PREVACID [Concomitant]
     Route: 065
  12. REMERON [Concomitant]
     Route: 065
  13. RISPERDAL [Concomitant]
     Route: 065
  14. OXYCONTIN [Concomitant]
     Route: 065
  15. LORTAB [Concomitant]
     Route: 065

REACTIONS (3)
  - ADVERSE EVENT [None]
  - ANXIETY [None]
  - CEREBROVASCULAR ACCIDENT [None]
